FAERS Safety Report 9648706 (Version 1)
Quarter: 2013Q4

REPORT INFORMATION
  Report Type: Spontaneous
  Country: SE (occurrence: SE)
  Receive Date: 20131028
  Receipt Date: 20131028
  Transmission Date: 20140711
  Serious: Yes (Other)
  Sender: FDA-Public Use
  Company Number: SE-JNJFOC-20131013768

PATIENT
  Age: 60 Year
  Sex: Female

DRUGS (5)
  1. REMICADE [Suspect]
     Indication: RHEUMATOID ARTHRITIS
     Route: 042
     Dates: start: 2000, end: 201306
  2. METHOTREXATE [Concomitant]
     Dosage: ONCE WEEKLY
     Route: 065
  3. FOLACIN [Concomitant]
     Route: 065
  4. SELOKEEN [Concomitant]
     Route: 065
  5. DICLOFENAC [Concomitant]
     Route: 065

REACTIONS (1)
  - Skin cancer [Unknown]
